FAERS Safety Report 15805844 (Version 3)
Quarter: 2019Q1

REPORT INFORMATION
  Report Type: Report from Study
  Country: None (occurrence: SE)
  Receive Date: 20190110
  Receipt Date: 20190122
  Transmission Date: 20190417
  Serious: Yes (Death, Life-Threatening, Hospitalization)
  Sender: FDA-Public Use
  Company Number: SE-ABBVIE-19S-150-2618346-00

PATIENT
  Age: 78 Year
  Sex: Male
  Weight: 63.4 kg

DRUGS (2)
  1. DUODOPA [Suspect]
     Active Substance: CARBIDOPA\LEVODOPA
     Indication: PARKINSON^S DISEASE
     Route: 050
     Dates: start: 20151013
  2. DUODOPA [Suspect]
     Active Substance: CARBIDOPA\LEVODOPA
     Route: 050
     Dates: start: 20151113

REACTIONS (6)
  - Infection [Unknown]
  - Haemoglobin decreased [Unknown]
  - Condition aggravated [Fatal]
  - Fall [Not Recovered/Not Resolved]
  - Cerebral haemorrhage [Fatal]
  - Multimorbidity [Unknown]

NARRATIVE: CASE EVENT DATE: 20190113
